FAERS Safety Report 11072530 (Version 2)
Quarter: 2015Q2

REPORT INFORMATION
  Report Type: Report from Study
  Country: US (occurrence: US)
  Receive Date: 20150428
  Receipt Date: 20150505
  Transmission Date: 20150821
  Serious: Yes (Hospitalization, Other)
  Sender: FDA-Public Use
  Company Number: US-ELI_LILLY_AND_COMPANY-US201504005414

PATIENT
  Age: 71 Year
  Sex: Female

DRUGS (15)
  1. COMPAZINE                          /00013304/ [Concomitant]
     Indication: NAUSEA
     Dosage: 5 MG, PRN
     Route: 048
     Dates: start: 20140721
  2. GEMCITABINE HYDROCHLORIDE. [Suspect]
     Active Substance: GEMCITABINE HYDROCHLORIDE
     Indication: PANCREATIC CARCINOMA METASTATIC
     Dosage: 1000 MG/M2, DAY 1 OF EACH CYCLE
     Route: 065
     Dates: start: 20140805
  3. CLOBETASOL PROPIONATE. [Concomitant]
     Active Substance: CLOBETASOL PROPIONATE
     Dosage: 0.05% AS NEEDED
     Route: 061
     Dates: start: 20140721
  4. ROXICODONE [Concomitant]
     Active Substance: OXYCODONE HYDROCHLORIDE
     Indication: ABDOMINAL PAIN
  5. ALPRAX [Concomitant]
     Indication: ANXIETY
     Dosage: 0.5 MG, UNK
     Dates: start: 20140721
  6. DEXAMETHASONE. [Concomitant]
     Active Substance: DEXAMETHASONE
     Dosage: 12 MG, UNK
     Route: 042
     Dates: start: 20140804
  7. HUMALOG [Concomitant]
     Active Substance: INSULIN LISPRO
     Dosage: UNK, TID BEFORE MEALS
     Dates: start: 201406
  8. EMLA [Concomitant]
     Active Substance: LIDOCAINE\PRILOCAINE
     Indication: PANCREATIC CARCINOMA
     Dosage: UNK
     Route: 061
     Dates: start: 20140805
  9. ROXICODONE [Concomitant]
     Active Substance: OXYCODONE HYDROCHLORIDE
     Indication: BACK PAIN
     Dosage: UNK
     Route: 048
     Dates: start: 20140730
  10. FLONASE [Concomitant]
     Active Substance: FLUTICASONE PROPIONATE
     Indication: RHINITIS ALLERGIC
     Dosage: 2 DF, UNK
     Route: 045
     Dates: start: 20140715
  11. ZOFRAN                             /00955301/ [Concomitant]
     Active Substance: ONDANSETRON HYDROCHLORIDE
     Indication: NAUSEA
     Dosage: UNK
     Route: 060
     Dates: start: 20140721
  12. VISMODEGIB [Suspect]
     Active Substance: VISMODEGIB
     Indication: PANCREATIC CARCINOMA METASTATIC
     Dosage: 150 MG, QD
     Route: 048
     Dates: start: 20140902
  13. PACLITAXEL, ABI-007 PROTEIN BOUND [Suspect]
     Active Substance: PACLITAXEL
     Indication: PANCREATIC CARCINOMA METASTATIC
     Dosage: 125 MG/M2, DAY 1 OF EACH CYCLE
     Route: 065
     Dates: start: 20140805
  14. PROTONIX [Concomitant]
     Active Substance: PANTOPRAZOLE SODIUM
     Indication: GASTROOESOPHAGEAL REFLUX DISEASE
     Dosage: 1 DF, EACH MORNING BEFORE BREAKFAST
     Route: 048
     Dates: start: 20140801
  15. ZYRTEC [Concomitant]
     Active Substance: CETIRIZINE HYDROCHLORIDE
     Dosage: 5 MG, QD
     Route: 048
     Dates: start: 20140909

REACTIONS (4)
  - Confusional state [Unknown]
  - Infection [Unknown]
  - Pyrexia [Unknown]
  - Diarrhoea [Unknown]

NARRATIVE: CASE EVENT DATE: 20150408
